FAERS Safety Report 9587893 (Version 2)
Quarter: 2014Q1

REPORT INFORMATION
  Report Type: Spontaneous
  Country: US (occurrence: US)
  Receive Date: 20131003
  Receipt Date: 20140226
  Transmission Date: 20141002
  Serious: Yes (Death)
  Sender: FDA-Public Use
  Company Number: US-GLAXOSMITHKLINE-A1043961A

PATIENT
  Age: 48 Year
  Sex: Female

DRUGS (1)
  1. HYCAMTIN [Suspect]
     Indication: TRACHEAL CANCER
     Dosage: 3.5MG PER DAY
     Route: 048
     Dates: start: 20130919

REACTIONS (1)
  - Death [Fatal]
